FAERS Safety Report 4498058-7 (Version None)
Quarter: 2004Q4

REPORT INFORMATION
  Report Type: 
  Country: None (occurrence: None)
  Receive Date: 20041109
  Receipt Date: 20041109
  Transmission Date: 20050328
  Serious: Yes (Other)
  Sender: FDA-Public Use
  Company Number: None

PATIENT
  Sex: Male

DRUGS (1)
  1. AFRIN [Suspect]
     Indication: SINUS PAIN
     Dosage: NASAL SPRAY
     Route: 045

REACTIONS (1)
  - CONVULSION [None]
